FAERS Safety Report 7685945-1 (Version None)
Quarter: 2011Q3

REPORT INFORMATION
  Report Type: 
  Country: None (occurrence: None)
  Receive Date: 20110816
  Receipt Date: 20110803
  Transmission Date: 20111222
  Serious: Yes (Disabling, Other)
  Sender: FDA-Public Use
  Company Number: PHHY2011AU06960

PATIENT
  Sex: Male

DRUGS (4)
  1. PREDNISOLONE [Concomitant]
  2. CARDIAC MEDICATIONS [Concomitant]
  3. GLEEVEC [Suspect]
     Indication: HYPEREOSINOPHILIC SYNDROME
     Dosage: 300 MG, QD
     Route: 048
     Dates: start: 20000101
  4. INSULIN [Concomitant]

REACTIONS (4)
  - EXOSTOSIS [None]
  - TENDON INJURY [None]
  - TENDONITIS [None]
  - HIP FRACTURE [None]
